FAERS Safety Report 7581976-0 (Version None)
Quarter: 2011Q2

REPORT INFORMATION
  Report Type: 
  Country: None (occurrence: None)
  Receive Date: 20110630
  Receipt Date: 20110621
  Transmission Date: 20111010
  Serious: Yes (Hospitalization, Disabling, Other)
  Sender: FDA-Public Use
  Company Number: HU-BIOGENIDEC-2011BI023398

PATIENT
  Age: 53 Year
  Sex: Female

DRUGS (6)
  1. BACLOFEN [Concomitant]
     Indication: MUSCLE SPASMS
     Dates: start: 20060101
  2. MEFORAL [Concomitant]
     Indication: DIABETES MELLITUS
     Dates: start: 20110120
  3. CITAPRAM [Concomitant]
     Indication: DEPRESSION
     Dates: start: 20080101
  4. XANAX [Concomitant]
     Indication: ANXIETY
     Dates: start: 20070101
  5. IRON SUPPLEMENTATION [Concomitant]
     Indication: IRON DEFICIENCY
  6. TYSABRI [Suspect]
     Indication: MULTIPLE SCLEROSIS
     Route: 042
     Dates: start: 20090924, end: 20110222

REACTIONS (4)
  - COLORECTAL CANCER [None]
  - DEEP VEIN THROMBOSIS [None]
  - ANAEMIA [None]
  - ASTHENIA [None]
